FAERS Safety Report 5128343-7 (Version None)
Quarter: 2006Q4

REPORT INFORMATION
  Report Type: 
  Country: None (occurrence: None)
  Receive Date: 20061011
  Receipt Date: 20060928
  Transmission Date: 20070319
  Serious: Yes (Hospitalization)
  Sender: FDA-Public Use
  Company Number: 2006092557

PATIENT
  Age: 76 Year
  Sex: Male
  Weight: 98.7 kg

DRUGS (12)
  1. SUTENT [Suspect]
     Indication: METASTATIC RENAL CELL CARCINOMA
     Dosage: 50 MG (50 MG, 1 IN 1 D), ORAL
     Route: 048
     Dates: start: 20060712, end: 20060724
  2. PERINDOPRIL ERBUMINE [Concomitant]
  3. FUROSEMIDE [Concomitant]
  4. FENTANYL [Concomitant]
  5. OXYCODONE HCL [Concomitant]
  6. METOCLOPRAMIDE [Concomitant]
  7. NEXIUM [Concomitant]
  8. SENOKOT [Concomitant]
  9. NILSTAT (NYSTATIN) [Concomitant]
  10. DEXAMETHASONE TAB [Concomitant]
  11. DIGOXIN [Concomitant]
  12. ENOXAPARIN SODIUM [Concomitant]

REACTIONS (5)
  - DYSPNOEA EXERTIONAL [None]
  - HYPERHIDROSIS [None]
  - MYOCARDIAL INFARCTION [None]
  - RESTLESSNESS [None]
  - THERAPEUTIC AGENT TOXICITY [None]
